FAERS Safety Report 5846970-6 (Version None)
Quarter: 2008Q3

REPORT INFORMATION
  Report Type: 
  Country: None (occurrence: None)
  Receive Date: 20080815
  Receipt Date: 20080805
  Transmission Date: 20090109
  Serious: Yes (Hospitalization, Disabling, Other)
  Sender: FDA-Public Use
  Company Number: PL-TEVA-175715ISR

PATIENT
  Sex: Female

DRUGS (3)
  1. DOXEPIN HCL [Suspect]
     Route: 048
     Dates: start: 20080601, end: 20080715
  2. PROPRANOLOL HYDROCHLORIDE [Suspect]
     Route: 048
     Dates: start: 20070101, end: 20080715
  3. PERSEN [Concomitant]
     Route: 048

REACTIONS (2)
  - ELECTROCARDIOGRAM QT PROLONGED [None]
  - VENTRICULAR ARRHYTHMIA [None]
